FAERS Safety Report 10025170 (Version 5)
Quarter: 2015Q1

REPORT INFORMATION
  Report Type: Spontaneous
  Country: US (occurrence: US)
  Receive Date: 20140320
  Receipt Date: 20150128
  Transmission Date: 20150720
  Serious: Yes (Death, Hospitalization, Other)
  Sender: FDA-Public Use
  Company Number: US-MERCK-1403USA009219

PATIENT
  Sex: Female
  Weight: 48.75 kg

DRUGS (1)
  1. JANUVIA [Suspect]
     Active Substance: SITAGLIPTIN PHOSPHATE
     Indication: TYPE 2 DIABETES MELLITUS
     Dosage: 100 MG, QD
     Route: 048
     Dates: start: 2008, end: 20130620

REACTIONS (15)
  - Lung cyst [Unknown]
  - Metastases to liver [Unknown]
  - Papillary thyroid cancer [Unknown]
  - Aortic arteriosclerosis [Unknown]
  - Renal cyst [Unknown]
  - Pulmonary embolism [Unknown]
  - Pancreaticoduodenectomy [Unknown]
  - Pancreatitis [Recovered/Resolved]
  - Haemorrhagic cyst [Unknown]
  - Pancreatic carcinoma stage IV [Fatal]
  - Extremity necrosis [Unknown]
  - Deep vein thrombosis [Unknown]
  - Peripheral vascular disorder [Unknown]
  - Toe amputation [Unknown]
  - Spinal osteoarthritis [Unknown]

NARRATIVE: CASE EVENT DATE: 20110803
